FAERS Safety Report 7288424-9 (Version None)
Quarter: 2011Q1

REPORT INFORMATION
  Report Type: 
  Country: None (occurrence: None)
  Receive Date: 20110211
  Receipt Date: 20110208
  Transmission Date: 20110831
  Serious: Yes (Hospitalization)
  Sender: FDA-Public Use
  Company Number: A0912509A

PATIENT
  Age: 75 Year
  Sex: Male

DRUGS (7)
  1. SPIRIVA [Concomitant]
  2. COZAAR [Concomitant]
  3. INSULIN [Concomitant]
  4. SIMVASTATIN [Concomitant]
  5. ADVAIR [Suspect]
     Indication: CHRONIC OBSTRUCTIVE PULMONARY DISEASE
     Dosage: 1PUFF TWICE PER DAY
     Route: 055
     Dates: start: 20100501
  6. ISOSORBIDE DINITRATE [Concomitant]
  7. FLOMAX [Concomitant]

REACTIONS (3)
  - DYSPHONIA [None]
  - PNEUMONIA STAPHYLOCOCCAL [None]
  - COLLAPSE OF LUNG [None]
